FAERS Safety Report 14245933 (Version 1)
Quarter: 2017Q4

REPORT INFORMATION
  Report Type: Spontaneous
  Country: RO (occurrence: RO)
  Receive Date: 20171204
  Receipt Date: 20171204
  Transmission Date: 20180321
  Serious: Yes (Other)
  Sender: FDA-Public Use
  Company Number: RO-ABBVIE-17S-135-2151072-00

PATIENT
  Age: 43 Year
  Sex: Male

DRUGS (2)
  1. KIVEXA [Concomitant]
     Active Substance: ABACAVIR SULFATE\LAMIVUDINE
     Indication: HIV INFECTION
     Dosage: FORM STRENGTH 600 MG/300 MG
     Route: 048
  2. KALETRA [Suspect]
     Active Substance: LOPINAVIR\RITONAVIR
     Indication: HIV INFECTION
     Dosage: 200 MG/50 MG?2 X 2 TABLETS/DAY
     Route: 048
     Dates: end: 20151115

REACTIONS (4)
  - Lipids increased [Recovering/Resolving]
  - Low density lipoprotein increased [Recovering/Resolving]
  - Blood triglycerides increased [Recovering/Resolving]
  - High density lipoprotein decreased [Recovering/Resolving]

NARRATIVE: CASE EVENT DATE: 20150326
